FAERS Safety Report 6683949-9 (Version None)
Quarter: 2010Q2

REPORT INFORMATION
  Report Type: 
  Country: None (occurrence: None)
  Receive Date: 20100416
  Receipt Date: 20100406
  Transmission Date: 20101027
  Serious: Yes (Other)
  Sender: FDA-Public Use
  Company Number: US-PFIZER INC-2010044067

PATIENT
  Sex: Female
  Weight: 65.76 kg

DRUGS (2)
  1. XANAX [Suspect]
     Indication: PANIC ATTACK
     Dosage: 0.5 MG, 2X/DAY
     Route: 048
     Dates: start: 20100301, end: 20100301
  2. XANAX [Suspect]
     Indication: INSOMNIA
     Dosage: 1 MG ONCE A DAY AT NIGHT
     Route: 048
     Dates: start: 20100301

REACTIONS (4)
  - EYE PAIN [None]
  - PANIC REACTION [None]
  - PHOTOSENSITIVITY REACTION [None]
  - WITHDRAWAL SYNDROME [None]
